FAERS Safety Report 15290815 (Version 1)
Quarter: 2018Q3

REPORT INFORMATION
  Report Type: Spontaneous
  Country: BR (occurrence: BR)
  Receive Date: 20180817
  Receipt Date: 20180817
  Transmission Date: 20181010
  Serious: Yes (Other)
  Sender: FDA-Public Use
  Company Number: PHHY2018BR073353

PATIENT
  Sex: Male

DRUGS (1)
  1. DUOTRAV BAC?FREE [Suspect]
     Active Substance: TIMOLOL\TRAVOPROST
     Indication: GLAUCOMA
     Route: 047

REACTIONS (3)
  - Eye haemorrhage [Unknown]
  - Product package associated injury [Unknown]
  - Product dropper issue [Unknown]
